FAERS Safety Report 23733882 (Version 2)
Quarter: 2024Q2

REPORT INFORMATION
  Report Type: Spontaneous
  Country: DZ (occurrence: DZ)
  Receive Date: 20240412
  Receipt Date: 20240417
  Transmission Date: 20240715
  Serious: Yes (Death)
  Sender: FDA-Public Use
  Company Number: DZ-BRISTOL-MYERS SQUIBB COMPANY-2024-057144

PATIENT
  Age: 68 Year
  Sex: Male
  Weight: 43 kg

DRUGS (1)
  1. NIVOLUMAB [Suspect]
     Active Substance: NIVOLUMAB
     Indication: Non-small cell lung cancer
     Dosage: 2 WEEKS, 240/2WEEKS
     Dates: start: 20240124, end: 20240207

REACTIONS (1)
  - Disease complication [Fatal]
